FAERS Safety Report 12909286 (Version 2)
Quarter: 2016Q4

REPORT INFORMATION
  Report Type: Report from Study
  Country: US (occurrence: US)
  Receive Date: 20161104
  Receipt Date: 20161228
  Transmission Date: 20170207
  Serious: No
  Sender: FDA-Public Use
  Company Number: PHEH2016US028332

PATIENT
  Sex: Male

DRUGS (1)
  1. ILARIS [Suspect]
     Active Substance: CANAKINUMAB
     Dosage: 4 MG/KG (87 MG, EVERY 4 WEEKS)
     Route: 058
     Dates: start: 201512, end: 201611

REACTIONS (2)
  - Pyrexia [Unknown]
  - Therapy non-responder [Unknown]
